FAERS Safety Report 4273093-2 (Version None)
Quarter: 2004Q1

REPORT INFORMATION
  Report Type: 
  Country: None (occurrence: None)
  Receive Date: 20040116
  Receipt Date: 20040112
  Transmission Date: 20041129
  Serious: Yes (Other)
  Sender: FDA-Public Use
  Company Number: GB-BRISTOL-MYERS SQUIBB COMPANY-12477022

PATIENT
  Age: 79 Year
  Sex: Male

DRUGS (9)
  1. LIPOSTAT [Suspect]
     Route: 048
     Dates: start: 20031030
  2. BISOPROLOL FUMARATE [Concomitant]
     Dosage: LOW DOSE
  3. ALLOPURINOL [Concomitant]
  4. ASPIRIN [Concomitant]
  5. CO-CODAMOL [Concomitant]
  6. BUMETANIDE [Concomitant]
  7. DIGOXIN [Concomitant]
  8. FOSINOPRIL SODIUM [Concomitant]
  9. MIXTARD HUMAN 70/30 [Concomitant]

REACTIONS (4)
  - BLOOD GLUCOSE INCREASED [None]
  - GLYCOSYLATED HAEMOGLOBIN INCREASED [None]
  - POLYDIPSIA [None]
  - POLYURIA [None]
